FAERS Safety Report 5962092-8 (Version None)
Quarter: 2008Q4

REPORT INFORMATION
  Report Type: 
  Country: None (occurrence: None)
  Receive Date: 20081121
  Receipt Date: 20081112
  Transmission Date: 20090506
  Serious: Yes (Hospitalization)
  Sender: FDA-Public Use
  Company Number: PHHY2008DE28215

PATIENT
  Age: 2 Year
  Sex: Male
  Weight: 14 kg

DRUGS (1)
  1. GLEEVEC [Suspect]
     Dosage: 1200 MG
     Route: 048
     Dates: start: 20081111, end: 20081111

REACTIONS (1)
  - ACCIDENTAL DRUG INTAKE BY CHILD [None]
